FAERS Safety Report 8899269 (Version 1)
Quarter: 2012Q4

REPORT INFORMATION
  Report Type: 
  Country: US (occurrence: US)
  Receive Date: 20121108
  Receipt Date: 20121108
  Transmission Date: 20130627
  Serious: No
  Sender: FDA-Public Use
  Company Number: US-AMGEN-USASP2012033390

PATIENT
  Sex: Female

DRUGS (11)
  1. ENBREL [Suspect]
     Indication: PRODUCT USED FOR UNKNOWN INDICATION
     Dosage: 25 mg, UNK
  2. SINGULAIR [Concomitant]
     Dosage: 10 mg, UNK
  3. XYZAL [Concomitant]
     Dosage: 5 mg, UNK
  4. DAYPRO [Concomitant]
     Dosage: 600 mg, UNK
  5. LIPITOR [Concomitant]
     Dosage: 10 mg, UNK
  6. ENABLEX                            /01760401/ [Concomitant]
     Dosage: 15 mg, UNK
  7. TEMAZEPAM [Concomitant]
     Dosage: 15 mg, UNK
  8. PROZAC [Concomitant]
     Dosage: 10 mg, UNK
  9. FOLIC ACID [Concomitant]
  10. METHOTREXATE [Concomitant]
  11. FLOVENT [Concomitant]
     Dosage: 100 mug, UNK

REACTIONS (1)
  - Activities of daily living impaired [Unknown]
